FAERS Safety Report 17952830 (Version 2)
Quarter: 2020Q3

REPORT INFORMATION
  Report Type: Spontaneous
  Country: US (occurrence: US)
  Receive Date: 20200627
  Receipt Date: 20200706
  Transmission Date: 20201103
  Serious: No
  Sender: FDA-Public Use
  Company Number: US-BIOGEN-2020BI00886732

PATIENT
  Sex: Male

DRUGS (2)
  1. TECFIDERA [Suspect]
     Active Substance: DIMETHYL FUMARATE
     Indication: MULTIPLE SCLEROSIS
     Dosage: FOR  7 DAYS
     Route: 048
     Dates: start: 202006
  2. TECFIDERA [Suspect]
     Active Substance: DIMETHYL FUMARATE
     Dosage: X 23 DAYS AFTER 120MG DOSE
     Route: 048
     Dates: start: 202006

REACTIONS (5)
  - Decreased appetite [Unknown]
  - Hepatic pain [Unknown]
  - Abdominal pain upper [Unknown]
  - Flushing [Unknown]
  - Gastrointestinal sounds abnormal [Unknown]
